FAERS Safety Report 16774831 (Version 1)
Quarter: 2019Q3

REPORT INFORMATION
  Report Type: Spontaneous
  Country: US (occurrence: US)
  Receive Date: 20190905
  Receipt Date: 20190905
  Transmission Date: 20191005
  Serious: Yes (Death)
  Sender: FDA-Public Use
  Company Number: US-ROCHE-2394420

PATIENT
  Age: 71 Year
  Sex: Female

DRUGS (1)
  1. XOLAIR [Suspect]
     Active Substance: OMALIZUMAB
     Indication: ASTHMA
     Dosage: BI-WEEKLY
     Route: 058
     Dates: start: 20180125, end: 20190822

REACTIONS (1)
  - Death [Fatal]

NARRATIVE: CASE EVENT DATE: 20190822
